FAERS Safety Report 15832656 (Version 4)
Quarter: 2019Q2

REPORT INFORMATION
  Report Type: Report from Study
  Country: US (occurrence: US)
  Receive Date: 20190116
  Receipt Date: 20190401
  Transmission Date: 20190711
  Serious: Yes (Hospitalization)
  Sender: FDA-Public Use
  Company Number: US-ACTELION-A-US2016-146939

PATIENT
  Age: 63 Year
  Sex: Male
  Weight: 99.77 kg

DRUGS (16)
  1. ALBUTEROL. [Concomitant]
     Active Substance: ALBUTEROL
     Dosage: UNK
     Dates: start: 2013
  2. PRAVACHOL [Concomitant]
     Active Substance: PRAVASTATIN SODIUM
     Dosage: UNK
     Dates: start: 2014
  3. NIFEDIPINE. [Concomitant]
     Active Substance: NIFEDIPINE
  4. SILDENAFIL CITRATE. [Concomitant]
     Active Substance: SILDENAFIL CITRATE
  5. ASPIRIN. [Concomitant]
     Active Substance: ASPIRIN
     Dosage: UNK
     Dates: start: 2014
  6. LASIX [Concomitant]
     Active Substance: FUROSEMIDE
  7. REVATIO [Concomitant]
     Active Substance: SILDENAFIL CITRATE
  8. OPSUMIT [Suspect]
     Active Substance: MACITENTAN
     Indication: PULMONARY ARTERIAL HYPERTENSION
     Dosage: UNK
     Route: 048
     Dates: start: 20161001, end: 20190222
  9. TRACLEER [Concomitant]
     Active Substance: BOSENTAN
  10. FLONASE [Concomitant]
     Active Substance: FLUTICASONE PROPIONATE
     Dosage: UNK
     Dates: start: 2016
  11. WARFARIN [Concomitant]
     Active Substance: WARFARIN
  12. PRILOSEC [Concomitant]
     Active Substance: OMEPRAZOLE MAGNESIUM
     Dosage: UNK
     Dates: start: 2013
  13. ADVAIR HFA [Concomitant]
     Active Substance: FLUTICASONE PROPIONATE\SALMETEROL XINAFOATE
     Dosage: UNK
     Dates: start: 2006
  14. LORATADINE. [Concomitant]
     Active Substance: LORATADINE
     Indication: PULMONARY ARTERIAL HYPERTENSION
     Dosage: UNK
     Dates: start: 2016
  15. METFORMIN [Concomitant]
     Active Substance: METFORMIN HYDROCHLORIDE
     Dosage: UNK
     Dates: start: 2016
  16. PROCARDIA [Concomitant]
     Active Substance: NIFEDIPINE

REACTIONS (24)
  - Fluid overload [Recovered/Resolved]
  - Cough [Recovered/Resolved]
  - Sputum discoloured [Recovered/Resolved]
  - Weight increased [Recovered/Resolved]
  - Asthma [Recovered/Resolved]
  - Right ventricular failure [Recovered/Resolved]
  - Respiratory tract infection [Recovered/Resolved]
  - Pulmonary hypertension [Unknown]
  - Biopsy lung [Unknown]
  - Oedema peripheral [Recovered/Resolved]
  - Abdominal distension [Recovered/Resolved]
  - Inflammation [Recovered/Resolved]
  - Cardiac failure congestive [Recovered/Resolved]
  - Condition aggravated [Recovered/Resolved]
  - Dyspnoea [Recovered/Resolved]
  - Acute respiratory failure [Recovered/Resolved]
  - Transplant evaluation [Unknown]
  - Oxygen saturation decreased [Recovered/Resolved]
  - Infection [Recovered/Resolved]
  - Treatment noncompliance [Recovered/Resolved]
  - Therapy non-responder [Unknown]
  - Pulmonary resection [Unknown]
  - Thoracic operation [Unknown]
  - Hypoxia [Not Recovered/Not Resolved]

NARRATIVE: CASE EVENT DATE: 20161118
